FAERS Safety Report 6967272-0 (Version None)
Quarter: 2010Q3

REPORT INFORMATION
  Report Type: 
  Country: None (occurrence: None)
  Receive Date: 20100901
  Receipt Date: 20100820
  Transmission Date: 20110219
  Serious: Yes (Hospitalization)
  Sender: FDA-Public Use
  Company Number: 010421

PATIENT
  Age: 49 Year
  Sex: Male
  Weight: 63 kg

DRUGS (2)
  1. PLETAL [Suspect]
     Indication: CEREBRAL INFARCTION
     Dosage: 100 MG, BID, ORAL
     Route: 048
     Dates: start: 20090402, end: 20090426
  2. PLAVIX [Concomitant]

REACTIONS (3)
  - ANAEMIA [None]
  - REFLUX OESOPHAGITIS [None]
  - TACHYCARDIA [None]
